FAERS Safety Report 17620615 (Version 5)
Quarter: 2020Q3

REPORT INFORMATION
  Report Type: Report from Study
  Country: KR (occurrence: KR)
  Receive Date: 20200403
  Receipt Date: 20200828
  Transmission Date: 20201102
  Serious: Yes (Hospitalization)
  Sender: FDA-Public Use
  Company Number: NVSC2020KR088568

PATIENT
  Age: 52 Year
  Sex: Female
  Weight: 63 kg

DRUGS (32)
  1. KEFZOL [Concomitant]
     Active Substance: CEFAZOLIN SODIUM
     Indication: CROHN^S DISEASE
     Dosage: 10 %, UNKNOWN
     Route: 065
     Dates: start: 20200311, end: 20200311
  2. NORMAL SALINE [Concomitant]
     Active Substance: SODIUM CHLORIDE
     Indication: COMPUTERISED TOMOGRAM
     Dosage: UNK
     Route: 065
     Dates: start: 20200326, end: 20200326
  3. CEFOTAXIME SODIUM [Concomitant]
     Active Substance: CEFOTAXIME SODIUM
     Indication: CROHN^S DISEASE
     Dosage: UNK
     Route: 065
     Dates: start: 20200326, end: 20200327
  4. SMOFKABIVEN PERIPHERAL [Concomitant]
     Indication: NUTRITIONAL CONDITION ABNORMAL
     Dosage: UNK
     Route: 065
     Dates: start: 20200326, end: 20200326
  5. WINUF [Concomitant]
     Indication: NUTRITIONAL CONDITION ABNORMAL
     Dosage: 1085 ML
     Route: 065
     Dates: start: 20200327
  6. SECUKINUMAB. [Suspect]
     Active Substance: SECUKINUMAB
     Indication: ANKYLOSING SPONDYLITIS
     Dosage: UNK
     Route: 058
     Dates: start: 20190207, end: 20200305
  7. PREDNISOLONE. [Concomitant]
     Active Substance: PREDNISOLONE
     Indication: ANKYLOSING SPONDYLITIS
     Dosage: UNK
     Route: 065
     Dates: start: 20190307, end: 20200325
  8. NORMAL SALINE [Concomitant]
     Active Substance: SODIUM CHLORIDE
     Indication: NUTRITIONAL SUPPLEMENTATION
     Dosage: UNK
     Route: 065
     Dates: start: 20200326, end: 20200327
  9. NORMAL SALINE [Concomitant]
     Active Substance: SODIUM CHLORIDE
     Indication: PREMEDICATION
     Dosage: UNK
     Route: 065
     Dates: start: 20200327, end: 20200327
  10. PANTOPRAZOLE [Concomitant]
     Active Substance: PANTOPRAZOLE
     Indication: PROPHYLAXIS
     Dosage: 40 MG
     Route: 065
     Dates: start: 20200328
  11. NORMAL SALINE [Concomitant]
     Active Substance: SODIUM CHLORIDE
     Dosage: UNK
     Route: 065
     Dates: start: 20200327
  12. FRESH FROZEN PLASMA [Concomitant]
     Active Substance: HUMAN PLASMA
     Indication: TRANSFUSION
     Dosage: UNK
     Route: 065
     Dates: start: 20200326, end: 20200326
  13. PROPOFOL. [Concomitant]
     Active Substance: PROPOFOL
     Indication: ENDOSCOPY
     Dosage: UNK
     Route: 065
     Dates: start: 20200316, end: 20200316
  14. PAMISOL [Concomitant]
     Active Substance: PAMIDRONATE DISODIUM
     Indication: NUTRITIONAL SUPPLEMENTATION
     Dosage: 500 ML
     Route: 065
     Dates: start: 20200326, end: 20200326
  15. POTASSIUM PHOSPHATE MONOBASIC [Concomitant]
     Active Substance: POTASSIUM PHOSPHATE, MONOBASIC
     Indication: ELECTROLYTE IMBALANCE
     Dosage: UNK
     Route: 065
     Dates: start: 20200327
  16. ESOMEPRAZOLE SODIUM. [Concomitant]
     Active Substance: ESOMEPRAZOLE SODIUM
     Indication: PROPHYLAXIS
     Dosage: UNK
     Route: 065
     Dates: start: 20200326, end: 20200326
  17. ACECLOFENAC [Concomitant]
     Active Substance: ACECLOFENAC
     Indication: ANKYLOSING SPONDYLITIS
     Dosage: UNK
     Route: 065
     Dates: start: 20180906, end: 20200325
  18. TIROPA [Concomitant]
     Active Substance: TIROPRAMIDE
     Indication: CROHN^S DISEASE
     Dosage: 100 MG
     Route: 065
     Dates: start: 20200311, end: 20200325
  19. LACTOBACILLUS [Concomitant]
     Active Substance: LACTOBACILLUS ACIDOPHILUS
     Indication: CROHN^S DISEASE
     Dosage: UNK
     Route: 065
     Dates: start: 20200311, end: 20200325
  20. BESZYME [Concomitant]
     Indication: CROHN^S DISEASE
     Dosage: UNK
     Route: 065
     Dates: start: 20200311, end: 20200325
  21. ESOMEPRAZOLE. [Concomitant]
     Active Substance: ESOMEPRAZOLE MAGNESIUM
     Indication: PROPHYLAXIS
     Dosage: UNK
     Route: 065
     Dates: start: 20181213, end: 20200325
  22. TAZOPEN [Concomitant]
     Indication: CROHN^S DISEASE
     Dosage: 4.5 G
     Route: 065
     Dates: start: 20200327, end: 20200327
  23. POLYBUTIN S.R [Concomitant]
     Indication: CROHN^S DISEASE
     Dosage: UNK
     Route: 065
     Dates: start: 20200311, end: 20200325
  24. FOLIC ACID. [Concomitant]
     Active Substance: FOLIC ACID
     Indication: PROPHYLAXIS
     Dosage: UNK
     Route: 065
     Dates: start: 20190107, end: 20200325
  25. NORMAL SALINE [Concomitant]
     Active Substance: SODIUM CHLORIDE
     Dosage: UNK
     Route: 065
     Dates: start: 20200328
  26. CHLORPHENIRAMINE MALEATE. [Concomitant]
     Active Substance: CHLORPHENIRAMINE MALEATE
     Indication: TRANSFUSION
     Dosage: UNK
     Route: 065
     Dates: start: 20200326, end: 20200326
  27. TAMIPOOL [Concomitant]
     Active Substance: VITAMINS
     Indication: NUTRITIONAL CONDITION ABNORMAL
     Dosage: UNK
     Route: 065
     Dates: start: 20200326, end: 20200326
  28. METHOTREXATE. [Concomitant]
     Active Substance: METHOTREXATE
     Indication: RHEUMATOID ARTHRITIS
     Dosage: UNK
     Route: 065
     Dates: start: 20160512, end: 20200325
  29. CHLORPHENIRAMINE MALEATE. [Concomitant]
     Active Substance: CHLORPHENIRAMINE MALEATE
     Indication: PROPHYLAXIS
     Dosage: UNK
     Route: 065
     Dates: start: 20200327, end: 20200327
  30. METRONIDAZOLE. [Concomitant]
     Active Substance: METRONIDAZOLE
     Indication: CROHN^S DISEASE
     Dosage: 500 MG, UNKNOWN
     Route: 065
     Dates: start: 20200326, end: 20200327
  31. ASCORBIC ACID. [Concomitant]
     Active Substance: ASCORBIC ACID
     Indication: NUTRITIONAL CONDITION ABNORMAL
     Dosage: 100 MG, UNKNOWN
     Route: 065
     Dates: start: 20200326, end: 20200326
  32. TAZOPEN [Concomitant]
     Dosage: 4.5 G
     Route: 065
     Dates: start: 20200328

REACTIONS (1)
  - Large intestine perforation [Not Recovered/Not Resolved]

NARRATIVE: CASE EVENT DATE: 20200326
